FAERS Safety Report 4461833-9 (Version None)
Quarter: 2004Q3

REPORT INFORMATION
  Report Type: 
  Country: None (occurrence: None)
  Receive Date: 20040929
  Receipt Date: 20031028
  Transmission Date: 20050211
  Serious: No
  Sender: FDA-Public Use
  Company Number: US-GLAXOSMITHKLINE-A0431912A

PATIENT
  Age: 72 Year
  Sex: Female

DRUGS (9)
  1. SEREVENT [Suspect]
     Dosage: 1PUFF TWICE PER DAY
     Route: 055
     Dates: start: 20030920, end: 20031023
  2. ADVAIR DISKUS 100/50 [Suspect]
     Route: 055
  3. ATACAND [Concomitant]
  4. ZYRTEC [Concomitant]
  5. SINGULAIR [Concomitant]
  6. EVISTA [Concomitant]
  7. THEOPHYLLINE [Concomitant]
  8. VITAMIN [Concomitant]
  9. ALBUTEROL [Concomitant]

REACTIONS (2)
  - APHONIA [None]
  - CANDIDIASIS [None]
